FAERS Safety Report 4337941-X (Version None)
Quarter: 2004Q2

REPORT INFORMATION
  Report Type: 
  Country: None (occurrence: None)
  Receive Date: 20040408
  Receipt Date: 20040329
  Transmission Date: 20050107
  Serious: Yes (Life-Threatening, Other)
  Sender: FDA-Public Use
  Company Number: FR-JNJFOC-20040200997

PATIENT
  Age: 50 Year
  Sex: Male
  Weight: 65 kg

DRUGS (5)
  1. REMICADE [Suspect]
     Indication: ANKYLOSING SPONDYLITIS
     Dosage: SEE IMAGE
     Route: 042
     Dates: start: 20031127, end: 20040129
  2. METHOTREXATE [Concomitant]
  3. SPECIAFOLDINE (FOLIC ACID) TABLETS [Concomitant]
  4. MOPRAL (OMEPRAZOLE) TABLETS [Concomitant]
  5. INDOMETHACIN [Concomitant]

REACTIONS (14)
  - CHEST DISCOMFORT [None]
  - DERMATITIS EXFOLIATIVE [None]
  - DRUG INTOLERANCE [None]
  - GENERALISED ERYTHEMA [None]
  - HOT FLUSH [None]
  - HYPERSENSITIVITY [None]
  - HYPERTENSION [None]
  - HYPOTENSION [None]
  - INFUSION RELATED REACTION [None]
  - MALAISE [None]
  - NAUSEA [None]
  - PALLOR [None]
  - SHOCK [None]
  - TACHYCARDIA [None]
